FAERS Safety Report 8827940 (Version 3)
Quarter: 2013Q1

REPORT INFORMATION
  Report Type: Report from Study
  Country: US (occurrence: US)
  Receive Date: 20121005
  Receipt Date: 20130124
  Transmission Date: 20140127
  Serious: No
  Sender: FDA-Public Use
  Company Number: US-VERTEX PHARMACEUTICAL INC.-2012-021346

PATIENT
  Age: 57 Year
  Sex: Female
  Weight: 54 kg

DRUGS (10)
  1. VX-950 (TELAPREVIR) [Suspect]
     Indication: HEPATITIS C
     Dosage: 750 MG, TID
     Route: 048
  2. PEGASYS [Suspect]
     Indication: HEPATITIS C
     Dosage: 180 ?G, UNK
  3. RIBAVIRIN [Suspect]
     Indication: HEPATITIS C
     Dosage: 200 MG, UNK
  4. PRILOSEC                           /00661201/ [Concomitant]
     Dosage: 10 MG, UNK
  5. CALCIUM [Concomitant]
     Dosage: 500 UNK, UNK
  6. MULTIVITAMIN                       /00097801/ [Concomitant]
  7. PROPRANOLOL [Concomitant]
     Dosage: 160 MG, UNK
  8. SPIRONOLACTONE [Concomitant]
     Dosage: 50 MG, UNK
  9. CELEXA                             /00582602/ [Concomitant]
     Dosage: 10 MG, UNK
  10. XANAX [Concomitant]
     Dosage: 0.5 MG, UNK

REACTIONS (8)
  - Vision blurred [Unknown]
  - Decreased appetite [Unknown]
  - Rash [Recovered/Resolved]
  - Anaemia [Unknown]
  - Diarrhoea [Unknown]
  - Nausea [Unknown]
  - Dysgeusia [Unknown]
  - Anorectal discomfort [Unknown]
